FAERS Safety Report 6577437-8 (Version None)
Quarter: 2010Q1

REPORT INFORMATION
  Report Type: 
  Country: None (occurrence: None)
  Receive Date: 20100211
  Receipt Date: 20100202
  Transmission Date: 20100710
  Serious: No
  Sender: FDA-Public Use
  Company Number: US-SOLVAY-00210000712

PATIENT
  Age: 655 Month
  Sex: Female
  Weight: 64 kg

DRUGS (2)
  1. UNKNOWN ANTI-INFLAMMATORY MEDICATION [Concomitant]
     Indication: NECK PAIN
     Dosage: DAILY DOSE:  UNKNOWN, FREQUENCY: AS NEEDED.
     Route: 048
     Dates: start: 20100101
  2. ANDROGEL [Suspect]
     Indication: ACCIDENTAL EXPOSURE
     Dosage: DAILY DOSE: 5 GRAM(S), VIA PUMP
     Route: 062
     Dates: start: 20090301

REACTIONS (3)
  - ABNORMAL DREAMS [None]
  - ACCIDENTAL EXPOSURE [None]
  - LIBIDO INCREASED [None]
